FAERS Safety Report 22269125 (Version 1)
Quarter: 2023Q2

REPORT INFORMATION
  Report Type: Spontaneous
  Country: US (occurrence: US)
  Receive Date: 20230501
  Receipt Date: 20230501
  Transmission Date: 20230722
  Serious: Yes (Hospitalization)
  Sender: FDA-Public Use
  Company Number: US-CTI BIOPHARMA-2023US03562

PATIENT

DRUGS (5)
  1. VONJO [Suspect]
     Active Substance: PACRITINIB
     Indication: Myelofibrosis
     Dosage: 100 MG, BID
     Route: 048
     Dates: start: 20220920
  2. LIDOCAINE\PRILOCAINE HYDROCHLORIDE [Concomitant]
     Active Substance: LIDOCAINE\PRILOCAINE HYDROCHLORIDE
  3. PROCHLORPERAZINE [Concomitant]
     Active Substance: PROCHLORPERAZINE
  4. ONDANSETRON [Concomitant]
     Active Substance: ONDANSETRON
  5. LEVAQUIN [Concomitant]
     Active Substance: LEVOFLOXACIN

REACTIONS (2)
  - Oxygen saturation decreased [Unknown]
  - Pneumonia [Unknown]
